FAERS Safety Report 4870155-3 (Version None)
Quarter: 2005Q4

REPORT INFORMATION
  Report Type: 
  Country: None (occurrence: None)
  Receive Date: 20051229
  Receipt Date: 20051229
  Transmission Date: 20060501
  Serious: Yes (Hospitalization)
  Sender: FDA-Public Use
  Company Number: None

PATIENT
  Sex: Female
  Weight: 61.6 kg

DRUGS (2)
  1. CLOFARABINE      GENZYME [Suspect]
     Indication: B-CELL TYPE ACUTE LEUKAEMIA
     Dosage: 20 MG/M2   D 1-3, 8-10   IV DRIP
     Route: 041
     Dates: start: 20051206, end: 20051216
  2. CYCLOPHOSPHAMIDE [Suspect]
     Dosage: 200 MG/M2 THEN 400 MG/M2  D 0-1, 2-3, 8-10   IV DRIP
     Route: 041
     Dates: start: 20051205, end: 20051216

REACTIONS (4)
  - ABDOMINAL PAIN [None]
  - BLOOD BILIRUBIN INCREASED [None]
  - DIARRHOEA [None]
  - PANCREATITIS [None]
